FAERS Safety Report 6253997-1 (Version None)
Quarter: 2009Q3

REPORT INFORMATION
  Report Type: 
  Country: None (occurrence: None)
  Receive Date: 20090702
  Receipt Date: 20090625
  Transmission Date: 20100115
  Serious: Yes (Hospitalization)
  Sender: FDA-Public Use
  Company Number: DK-ROCHE-626611

PATIENT
  Sex: Male

DRUGS (22)
  1. TOREM [Suspect]
     Indication: DRUG USE FOR UNKNOWN INDICATION
     Route: 065
  2. SAXAGLIPTIN [Suspect]
     Indication: TYPE 2 DIABETES MELLITUS
     Route: 048
     Dates: start: 20070730
  3. SAXAGLIPTIN [Suspect]
     Route: 048
     Dates: end: 20090109
  4. SAXAGLIPTIN [Suspect]
     Route: 048
     Dates: end: 20090214
  5. SAXAGLIPTIN [Suspect]
     Route: 048
  6. LISINOPRIL [Suspect]
     Indication: DRUG USE FOR UNKNOWN INDICATION
     Route: 065
     Dates: start: 20090110
  7. FOSINORM [Suspect]
     Indication: DRUG USE FOR UNKNOWN INDICATION
     Route: 065
  8. NEBILET [Suspect]
     Indication: DRUG USE FOR UNKNOWN INDICATION
     Route: 065
  9. DOXAZOSIN MESYLATE [Suspect]
     Indication: HYPERTENSION
     Route: 048
     Dates: start: 20090114
  10. CARMEN [Suspect]
     Indication: DRUG USE FOR UNKNOWN INDICATION
     Route: 065
  11. INSUMAN COMB 25 [Suspect]
     Indication: TYPE 2 DIABETES MELLITUS
     Route: 058
     Dates: start: 20080723
  12. ASPIRIN [Concomitant]
     Dates: start: 20081230, end: 20081230
  13. ASPIRIN [Concomitant]
     Dates: start: 20080619
  14. ALLOPURINOL [Concomitant]
     Dates: start: 20081218, end: 20081230
  15. AMOXICILLIN AND CLAVULANATE POTASSIUM [Concomitant]
     Dates: start: 20081119, end: 20081129
  16. XIPAMIDE [Concomitant]
     Dates: start: 20080619, end: 20090109
  17. CEFUROXIME [Concomitant]
     Dates: start: 20090224
  18. BISOPROLOL [Concomitant]
     Dates: start: 20090110
  19. TORSEMIDE [Concomitant]
     Dates: start: 20080723
  20. METOPROLOL SUCCINATE [Concomitant]
     Dates: start: 20080619, end: 20090109
  21. TRAMADOL [Concomitant]
     Dates: start: 20081216, end: 20081218
  22. NOVAMINSULFON [Concomitant]
     Dates: start: 20081218, end: 20081219

REACTIONS (4)
  - ABDOMINAL PAIN UPPER [None]
  - ARTERIOVENOUS FISTULA OPERATION [None]
  - ORTHOSTATIC HYPOTENSION [None]
  - PNEUMONIA [None]
